FAERS Safety Report 22650524 (Version 1)
Quarter: 2023Q2

REPORT INFORMATION
  Report Type: Spontaneous
  Country: US (occurrence: US)
  Receive Date: 20230628
  Receipt Date: 20230628
  Transmission Date: 20230721
  Serious: No
  Sender: FDA-Public Use
  Company Number: US-TEVA-2023-US-2896544

PATIENT
  Age: 76 Year
  Sex: Female
  Weight: 106.59 kg

DRUGS (1)
  1. QVAR REDIHALER [Suspect]
     Active Substance: BECLOMETHASONE DIPROPIONATE
     Indication: Asthma
     Dosage: 80 MCG/DOSE, 2 PUFFS IN THE MORNING AND NIGHT
     Dates: start: 202211

REACTIONS (2)
  - Inability to afford medication [Unknown]
  - Dysphonia [Unknown]

NARRATIVE: CASE EVENT DATE: 20230101
